FAERS Safety Report 4524970-6 (Version None)
Quarter: 2005Q1

REPORT INFORMATION
  Report Type: 
  Country: None (occurrence: None)
  Receive Date: 20041117
  Receipt Date: 20030616
  Transmission Date: 20050727
  Serious: Yes (Other)
  Sender: FDA-Public Use
  Company Number: C2003-1512.01

PATIENT
  Age: 40 Year
  Sex: Male

DRUGS (3)
  1. CLOZAPINE [Suspect]
     Indication: SCHIZOPHRENIA
     Dosage: 200 Q AM, 300 Q PM, ORAL
     Route: 048
     Dates: end: 20030611
  2. COPEGUS [Suspect]
     Indication: HEPATITIS C
     Dosage: 600 MG BID, ORAL
     Route: 048
     Dates: start: 20030514
  3. PEGASYS [Suspect]
     Indication: HEPATITIS C
     Dosage: 180MCG, WEEKLY, SQ
     Route: 058
     Dates: start: 20030514

REACTIONS (1)
  - LEUKOPENIA [None]
